FAERS Safety Report 22352133 (Version 1)
Quarter: 2023Q2

REPORT INFORMATION
  Report Type: Spontaneous
  Country: GB (occurrence: GB)
  Receive Date: 20230522
  Receipt Date: 20230522
  Transmission Date: 20230721
  Serious: Yes (Life-Threatening, Other)
  Sender: FDA-Public Use
  Company Number: GB-MHRA-MED-202305171453104210-JPFVY

PATIENT
  Age: 61 Year
  Sex: Female

DRUGS (4)
  1. HYDROCORTISONE SODIUM SUCCINATE [Suspect]
     Active Substance: HYDROCORTISONE SODIUM SUCCINATE
     Indication: Chronic obstructive pulmonary disease
     Dosage: 100MG IN 2ML
     Route: 041
     Dates: start: 20230517
  2. IPRATROPIUM [Concomitant]
     Active Substance: IPRATROPIUM
     Indication: Dyspnoea
     Dates: start: 20230517, end: 20230517
  3. ALBUTEROL [Concomitant]
     Active Substance: ALBUTEROL
     Indication: Dyspnoea
     Dates: start: 20230517, end: 20230517
  4. PREDNISONE [Concomitant]
     Active Substance: PREDNISONE

REACTIONS (3)
  - Anaphylactic reaction [Recovered/Resolved]
  - Respiratory arrest [Recovered/Resolved]
  - Off label use [Unknown]

NARRATIVE: CASE EVENT DATE: 20230517
